FAERS Safety Report 11544630 (Version 1)
Quarter: 2015Q3

REPORT INFORMATION
  Report Type: Spontaneous
  Country: US (occurrence: US)
  Receive Date: 20150924
  Receipt Date: 20150924
  Transmission Date: 20151125
  Serious: Yes (Hospitalization, Other)
  Sender: FDA-Public Use
  Company Number: US-ELI_LILLY_AND_COMPANY-US201509006932

PATIENT
  Age: 70 Year
  Sex: Male

DRUGS (3)
  1. HUMALOG MIX75/25 [Suspect]
     Active Substance: INSULIN LISPRO
     Indication: DIABETES MELLITUS
     Route: 065
  2. LANTUS [Concomitant]
     Active Substance: INSULIN GLARGINE
     Dosage: 20 U, EACH EVENING
  3. HUMALOG [Suspect]
     Active Substance: INSULIN LISPRO
     Indication: DIABETES MELLITUS
     Dosage: 5 U, WITH MEALS
     Route: 065
     Dates: start: 20150722

REACTIONS (8)
  - Glycosylated haemoglobin increased [Recovering/Resolving]
  - Blood glucose decreased [Unknown]
  - Blood glucose increased [Unknown]
  - Renal disorder [Unknown]
  - Drug dose omission [Unknown]
  - Muscle rupture [Unknown]
  - Visual impairment [Not Recovered/Not Resolved]
  - Blood glucose increased [Unknown]

NARRATIVE: CASE EVENT DATE: 20150920
